FAERS Safety Report 9170384 (Version 2)
Quarter: 2013Q2

REPORT INFORMATION
  Report Type: Spontaneous
  Country: US (occurrence: US)
  Receive Date: 20130319
  Receipt Date: 20130510
  Transmission Date: 20140414
  Serious: Yes (Hospitalization)
  Sender: FDA-Public Use
  Company Number: US-BAYER-2013-032064

PATIENT
  Age: 28 Year
  Sex: Female
  Weight: 171.88 kg

DRUGS (13)
  1. YASMIN [Suspect]
     Indication: DYSFUNCTIONAL UTERINE BLEEDING
  2. YASMIN [Suspect]
     Indication: ACNE
  3. YAZ [Suspect]
     Indication: ACNE
  4. OCELLA [Suspect]
     Indication: ACNE
  5. PEPCID [CALCIUM CARBONATE,FAMOTIDINE,MAGNESIUM HYDROXIDE] [Concomitant]
  6. MAGNESIUM SULPHATE [MAGNESIUM SULFATE] [Concomitant]
  7. ULTRAM [Concomitant]
  8. NASONEX [Concomitant]
  9. TIGAN [Concomitant]
  10. ACIPHEX [Concomitant]
  11. FERROUS SULFATE [Concomitant]
  12. LOPRESSOR [Concomitant]
  13. VICODIN [Concomitant]

REACTIONS (5)
  - Pulmonary embolism [None]
  - Cholecystitis chronic [None]
  - Injury [None]
  - Pain [None]
  - Pain [None]
